FAERS Safety Report 5505933-0 (Version None)
Quarter: 2007Q4

REPORT INFORMATION
  Report Type: 
  Country: None (occurrence: None)
  Receive Date: 20071103
  Receipt Date: 20071023
  Transmission Date: 20080405
  Serious: Yes (Other)
  Sender: FDA-Public Use
  Company Number: CA-ELI_LILLY_AND_COMPANY-CA200710005908

PATIENT
  Sex: Female

DRUGS (4)
  1. FORTEO [Suspect]
     Indication: OSTEOPOROSIS
     Dosage: 20 UG, DAILY (1/D)
     Route: 058
     Dates: start: 20060419, end: 20071022
  2. MORPHINE [Concomitant]
     Dosage: 100 MG, 2/D
  3. TYLENOL /USA/ [Concomitant]
  4. MULTIVITAMINS, COMBINATIONS [Concomitant]

REACTIONS (2)
  - BLOOD TEST ABNORMAL [None]
  - OESOPHAGEAL CARCINOMA [None]
